FAERS Safety Report 24368554 (Version 2)
Quarter: 2024Q4

REPORT INFORMATION
  Report Type: Report from Study
  Country: US (occurrence: US)
  Receive Date: 20240926
  Receipt Date: 20241002
  Transmission Date: 20250115
  Serious: Yes (Death)
  Sender: ABBVIE
  Company Number: US-ABBVIE-5939657

PATIENT
  Age: 94 Year
  Sex: Female

DRUGS (1)
  1. SYNTHROID [Suspect]
     Active Substance: LEVOTHYROXINE SODIUM
     Indication: Hypothyroidism
     Dosage: 75MCG/1 TAB DAILY
     Route: 048
     Dates: start: 20220406, end: 20240922

REACTIONS (1)
  - Death [Fatal]

NARRATIVE: CASE EVENT DATE: 20240922
